FAERS Safety Report 10155227 (Version 1)
Quarter: 2014Q2

REPORT INFORMATION
  Report Type: Spontaneous
  Country: US (occurrence: US)
  Receive Date: 20140506
  Receipt Date: 20140506
  Transmission Date: 20141212
  Serious: No
  Sender: FDA-Public Use
  Company Number: US-ASTRAZENECA-2014SE05439

PATIENT
  Age: 21 Year
  Sex: Male

DRUGS (2)
  1. PRILOSEC [Suspect]
     Indication: ABDOMINAL PAIN UPPER
     Route: 048
  2. PRILOSEC OTC [Suspect]
     Indication: ABDOMINAL PAIN UPPER
     Dosage: UNKNOWN
     Route: 048

REACTIONS (2)
  - Dyspepsia [Not Recovered/Not Resolved]
  - Gastrointestinal pain [Not Recovered/Not Resolved]
